FAERS Safety Report 15575533 (Version 11)
Quarter: 2022Q1

REPORT INFORMATION
  Report Type: Spontaneous
  Country: US (occurrence: US)
  Receive Date: 20181101
  Receipt Date: 20220302
  Transmission Date: 20220423
  Serious: Yes (Life-Threatening, Other)
  Sender: FDA-Public Use
  Company Number: US-PFIZER INC-2018067898

PATIENT
  Age: 79 Year
  Sex: Female

DRUGS (1)
  1. XELJANZ XR [Suspect]
     Active Substance: TOFACITINIB CITRATE
     Dosage: 11 MG

REACTIONS (17)
  - COVID-19 [Unknown]
  - Pneumonia [Unknown]
  - Spinal fracture [Unknown]
  - Drug dependence [Unknown]
  - Hypoacusis [Unknown]
  - Pain [Unknown]
  - Arthritis [Unknown]
  - Eye disorder [Unknown]
  - Gait disturbance [Unknown]
  - Ear pain [Unknown]
  - Anxiety [Unknown]
  - Chest pain [Unknown]
  - Lung disorder [Unknown]
  - Alopecia [Unknown]
  - Peripheral swelling [Unknown]
  - Oropharyngeal pain [Unknown]
  - Illness [Unknown]
